FAERS Safety Report 9226816 (Version 1)
Quarter: 2013Q2

REPORT INFORMATION
  Report Type: Spontaneous
  Country: CH (occurrence: CH)
  Receive Date: 20130412
  Receipt Date: 20130424
  Transmission Date: 20140414
  Serious: Yes (Other)
  Sender: FDA-Public Use
  Company Number: CH-JNJFOC-20130317543

PATIENT
  Age: 48 Year
  Sex: Male

DRUGS (4)
  1. RISPERDAL [Suspect]
     Indication: PRODUCT USED FOR UNKNOWN INDICATION
     Route: 048
  2. WELLBUTRIN XR [Interacting]
     Indication: PRODUCT USED FOR UNKNOWN INDICATION
     Route: 048
     Dates: start: 201101
  3. DALMADORM [Concomitant]
     Route: 065
  4. AKINETON [Concomitant]
     Route: 048

REACTIONS (2)
  - Akathisia [Not Recovered/Not Resolved]
  - Drug interaction [Unknown]
